FAERS Safety Report 21357919 (Version 1)
Quarter: 2022Q3

REPORT INFORMATION
  Report Type: Spontaneous
  Country: US (occurrence: US)
  Receive Date: 20220921
  Receipt Date: 20220921
  Transmission Date: 20221027
  Serious: No
  Sender: FDA-Public Use
  Company Number: US-ORGANON-O2209USA001050

PATIENT
  Sex: Female

DRUGS (5)
  1. FOLLISTIM AQ [Suspect]
     Active Substance: FOLLITROPIN
     Indication: Infertility female
     Dosage: 900 UNT/1.08ML, INJECT 375 UNITS UNDER THE SKIN (SUBCUTANEOUS INJECTION) IN THE EVENING AS DIRECTED
     Route: 058
     Dates: start: 20220830
  2. GANIRELIX ACETATE [Concomitant]
     Active Substance: GANIRELIX ACETATE
     Dosage: 250 MICROGRAM (MCG) SYRINGE (SYR)
  3. GONADOTROPHIN, CHORIONIC [Concomitant]
     Active Substance: GONADOTROPHIN, CHORIONIC
     Dosage: 10,000 UNIT MULTIDOSE VIAL (MDV)
  4. LEUPROLIDE ACETATE [Concomitant]
     Active Substance: LEUPROLIDE ACETATE
     Dosage: 1MG/0.2ML MILLIGRAM/ MILLITRE MULTIDOSE VIAL ( MDV 1=2.8)
  5. MENOPUR [Concomitant]
     Active Substance: FOLLITROPIN\LUTEINIZING HORMONE
     Dosage: 75 INTERNATIONAL UNITS (IU) SINGLE DOSE VIAL WITHOUT CAPSULE (SDV W/O-CAP)

REACTIONS (2)
  - Headache [Unknown]
  - Nausea [Unknown]

NARRATIVE: CASE EVENT DATE: 20220101
